FAERS Safety Report 13100429 (Version 2)
Quarter: 2017Q2

REPORT INFORMATION
  Report Type: Spontaneous
  Country: US (occurrence: US)
  Receive Date: 20170110
  Receipt Date: 20170418
  Transmission Date: 20170830
  Serious: No
  Sender: FDA-Public Use
  Company Number: US-BAYER-2017-004512

PATIENT
  Sex: Male

DRUGS (1)
  1. ALEVE [Suspect]
     Active Substance: NAPROXEN SODIUM
     Indication: GOUT
     Dosage: 1 DF, UNK
     Route: 048

REACTIONS (4)
  - Therapeutic response unexpected [None]
  - Wrong technique in product usage process [Unknown]
  - Product use in unapproved indication [Unknown]
  - Oesophagitis [Unknown]
